FAERS Safety Report 25209456 (Version 1)
Quarter: 2025Q2

REPORT INFORMATION
  Report Type: Spontaneous
  Country: US (occurrence: US)
  Receive Date: 20250417
  Receipt Date: 20250417
  Transmission Date: 20250716
  Serious: No
  Sender: SANOFI AVENTIS
  Company Number: US-SA-2025SA110325

PATIENT
  Age: 68 Year
  Sex: Male
  Weight: 86.18 kg

DRUGS (1)
  1. DUPIXENT [Suspect]
     Active Substance: DUPILUMAB
     Dosage: 300 MG, QOW
     Route: 058
     Dates: end: 202504

REACTIONS (4)
  - Joint swelling [Unknown]
  - Blister [Unknown]
  - Scratch [Not Recovered/Not Resolved]
  - Urticaria [Unknown]

NARRATIVE: CASE EVENT DATE: 20250401
